FAERS Safety Report 7615817-X (Version None)
Quarter: 2011Q3

REPORT INFORMATION
  Report Type: 
  Country: None (occurrence: None)
  Receive Date: 20110711
  Receipt Date: 20110624
  Transmission Date: 20111222
  Serious: Yes (Life-Threatening, Hospitalization, Other)
  Sender: FDA-Public Use
  Company Number: 2011MA008033

PATIENT
  Age: 38 Year
  Sex: Male

DRUGS (1)
  1. PHENYTOIN [Suspect]
     Indication: SUBARACHNOID HAEMORRHAGE

REACTIONS (3)
  - STEVENS-JOHNSON SYNDROME [None]
  - LIVER FUNCTION TEST ABNORMAL [None]
  - DRUG RASH WITH EOSINOPHILIA AND SYSTEMIC SYMPTOMS [None]
